FAERS Safety Report 7781390-9 (Version None)
Quarter: 2011Q3

REPORT INFORMATION
  Report Type: 
  Country: None (occurrence: None)
  Receive Date: 20110927
  Receipt Date: 20110921
  Transmission Date: 20111222
  Serious: Yes (Hospitalization, Other)
  Sender: FDA-Public Use
  Company Number: US-MERCK-0903USA00782

PATIENT
  Age: 66 Year
  Sex: Female
  Weight: 57 kg

DRUGS (7)
  1. FOSAMAX [Suspect]
     Route: 048
     Dates: end: 20081231
  2. FOSAMAX [Suspect]
     Indication: OSTEOPOROSIS
     Route: 048
     Dates: start: 20000601, end: 20030101
  3. FOSAMAX [Suspect]
     Route: 048
     Dates: start: 20030101, end: 20080701
  4. FOSAMAX [Suspect]
     Route: 048
     Dates: end: 20081231
  5. FOSAMAX [Suspect]
     Indication: OSTEOPENIA
     Route: 048
     Dates: start: 20000601, end: 20030101
  6. FOSAMAX [Suspect]
     Route: 048
     Dates: start: 20030101, end: 20080701
  7. FOSAMAX [Suspect]
     Route: 048
     Dates: start: 20080201

REACTIONS (17)
  - OSTEOSCLEROSIS [None]
  - URINARY TRACT INFECTION [None]
  - PERIARTHRITIS [None]
  - PATHOLOGICAL FRACTURE [None]
  - FALL [None]
  - IMPAIRED HEALING [None]
  - OSTEOARTHRITIS [None]
  - FEMUR FRACTURE [None]
  - SPINAL OSTEOARTHRITIS [None]
  - LIMB DISCOMFORT [None]
  - HYPERLIPIDAEMIA [None]
  - UTERINE LEIOMYOMA [None]
  - INTERVERTEBRAL DISC DEGENERATION [None]
  - APPENDIX DISORDER [None]
  - VENOUS THROMBOSIS LIMB [None]
  - LUMBAR VERTEBRAL FRACTURE [None]
  - VITAMIN D DEFICIENCY [None]
